FAERS Safety Report 10061270 (Version 1)
Quarter: 2014Q2

REPORT INFORMATION
  Report Type: Spontaneous
  Country: BR (occurrence: BR)
  Receive Date: 20140407
  Receipt Date: 20140407
  Transmission Date: 20141212
  Serious: Yes (Death, Hospitalization, Other)
  Sender: FDA-Public Use
  Company Number: BR-AMGEN INC.-BRASP2014024512

PATIENT
  Sex: Female
  Weight: 50 kg

DRUGS (2)
  1. ENBREL [Suspect]
     Indication: RHEUMATOID ARTHRITIS
     Dosage: 50 MG, 1X/WEEK
     Route: 065
     Dates: start: 201307, end: 201401
  2. INSULIN [Concomitant]
     Indication: DIABETES MELLITUS
     Dosage: 60 IU, DAILY

REACTIONS (4)
  - Cardiac arrest [Fatal]
  - Multi-organ failure [Fatal]
  - Blood disorder [Recovering/Resolving]
  - Infection [Unknown]
